FAERS Safety Report 10372565 (Version 1)
Quarter: 2014Q3

REPORT INFORMATION
  Report Type: Spontaneous
  Country: US (occurrence: US)
  Receive Date: 20140808
  Receipt Date: 20140808
  Transmission Date: 20150326
  Serious: No
  Sender: FDA-Public Use
  Company Number: US-BRISTOL-MYERS SQUIBB COMPANY-19190941

PATIENT
  Age: 49 Year
  Sex: Female
  Weight: 98.41 kg

DRUGS (3)
  1. IRON [Concomitant]
     Active Substance: IRON
  2. VITAMIN B12 [Concomitant]
     Active Substance: CYANOCOBALAMIN
  3. SPRYCEL [Suspect]
     Active Substance: DASATINIB
     Indication: CHRONIC MYELOID LEUKAEMIA
     Dosage: DOSE REDUCED TO 70MG ON MAR12
     Route: 048
     Dates: start: 201201

REACTIONS (4)
  - Red blood cell count decreased [Recovered/Resolved]
  - Skin disorder [Recovered/Resolved]
  - Helicobacter infection [Recovered/Resolved]
  - Menorrhagia [Not Recovered/Not Resolved]

NARRATIVE: CASE EVENT DATE: 201201
